FAERS Safety Report 5347417-9 (Version None)
Quarter: 2007Q2

REPORT INFORMATION
  Report Type: 
  Country: None (occurrence: None)
  Receive Date: 20070507
  Receipt Date: 20060727
  Transmission Date: 20071010
  Serious: Yes (Hospitalization)
  Sender: FDA-Public Use
  Company Number: 2291

PATIENT
  Sex: Female

DRUGS (1)
  1. AVINZA [Suspect]

REACTIONS (1)
  - DRUG DEPENDENCE [None]
